FAERS Safety Report 5419718-7 (Version None)
Quarter: 2007Q3

REPORT INFORMATION
  Report Type: 
  Country: None (occurrence: None)
  Receive Date: 20070820
  Receipt Date: 20070806
  Transmission Date: 20080115
  Serious: Yes (Other)
  Sender: FDA-Public Use
  Company Number: JP-ROCHE-491146

PATIENT
  Age: 47 Year
  Sex: Female

DRUGS (2)
  1. TAMIFLU [Suspect]
     Route: 048
     Dates: start: 20070327, end: 20070328
  2. ACETAMINOPHEN [Concomitant]
     Route: 048
     Dates: start: 20070327, end: 20070329

REACTIONS (1)
  - ENTEROCOLITIS HAEMORRHAGIC [None]
